FAERS Safety Report 4964686-5 (Version None)
Quarter: 2006Q2

REPORT INFORMATION
  Report Type: 
  Country: None (occurrence: None)
  Receive Date: 20060406
  Receipt Date: 20060227
  Transmission Date: 20061013
  Serious: Yes (Hospitalization, Other)
  Sender: FDA-Public Use
  Company Number: US-MERCK-0603USA00009

PATIENT
  Age: 61 Year
  Sex: Female
  Weight: 135 kg

DRUGS (2)
  1. VIOXX [Suspect]
     Indication: ARTHRALGIA
     Route: 048
     Dates: start: 19981101, end: 20040803
  2. ASPIRIN [Concomitant]
     Route: 065

REACTIONS (4)
  - CARDIAC MURMUR [None]
  - CEREBROVASCULAR ACCIDENT [None]
  - GASTRIC ULCER HAEMORRHAGE [None]
  - THROMBOSIS [None]
